FAERS Safety Report 11916597 (Version 1)
Quarter: 2016Q1

REPORT INFORMATION
  Report Type: Spontaneous
  Country: US (occurrence: None)
  Receive Date: 20160113
  Receipt Date: 20160113
  Transmission Date: 20160526
  Serious: Yes (Other)
  Sender: FDA-Public Use
  Company Number: None

PATIENT
  Age: 88 Year
  Sex: Female
  Weight: 65.77 kg

DRUGS (3)
  1. PRESER VISION AREDS 2 [Concomitant]
  2. REFRESH PLUS EYEDROPS [Concomitant]
  3. RESTASIS [Suspect]
     Active Substance: CYCLOSPORINE
     Indication: DRY EYE
     Route: 047

REACTIONS (6)
  - Nausea [None]
  - Throat irritation [None]
  - Nasal discomfort [None]
  - Oral discomfort [None]
  - Oropharyngeal pain [None]
  - Glossodynia [None]

NARRATIVE: CASE EVENT DATE: 20151210
